FAERS Safety Report 6742200-1 (Version None)
Quarter: 2010Q2

REPORT INFORMATION
  Report Type: 
  Country: None (occurrence: None)
  Receive Date: 20100526
  Receipt Date: 20100514
  Transmission Date: 20101027
  Serious: Yes (Other)
  Sender: FDA-Public Use
  Company Number: BR-SANOFI-AVENTIS-2010SA028184

PATIENT
  Sex: Male

DRUGS (5)
  1. LANTUS [Suspect]
     Route: 058
  2. LANTUS [Suspect]
     Route: 058
     Dates: end: 20100101
  3. LANTUS [Suspect]
     Route: 058
     Dates: end: 20100101
  4. SOLOSTAR [Suspect]
  5. SOLOSTAR [Suspect]
     Dates: start: 20100101

REACTIONS (4)
  - DRUG INEFFECTIVE [None]
  - FEELING ABNORMAL [None]
  - PRODUCT QUALITY ISSUE [None]
  - SYNCOPE [None]
